FAERS Safety Report 4283976-5 (Version None)
Quarter: 2004Q1

REPORT INFORMATION
  Report Type: 
  Country: None (occurrence: None)
  Receive Date: 20040129
  Receipt Date: 20040121
  Transmission Date: 20041129
  Serious: Yes (Death)
  Sender: FDA-Public Use
  Company Number: D01200400202

PATIENT
  Age: 70 Year
  Sex: Female
  Weight: 70 kg

DRUGS (1)
  1. CISPLATIN [Suspect]
     Indication: CARCINOMA
     Dosage: 100 MG/M2 OTHER - INTRAVENOUS NOS
     Route: 042
     Dates: start: 20031124, end: 20031124

REACTIONS (1)
  - DRUG TOXICITY [None]
